FAERS Safety Report 22251728 (Version 1)
Quarter: 2023Q2

REPORT INFORMATION
  Report Type: Spontaneous
  Country: CH (occurrence: CH)
  Receive Date: 20230425
  Receipt Date: 20230425
  Transmission Date: 20230722
  Serious: Yes (Hospitalization, Other)
  Sender: FDA-Public Use
  Company Number: CH-009507513-2304CHE008944

PATIENT
  Age: 80 Year
  Sex: Female

DRUGS (1)
  1. KEYTRUDA [Suspect]
     Active Substance: PEMBROLIZUMAB
     Dosage: UNK, Q3W
     Dates: start: 20200306, end: 202203

REACTIONS (5)
  - Cystitis [Unknown]
  - Hypothyroidism [Unknown]
  - Therapy partial responder [Recovered/Resolved]
  - Drug eruption [Recovering/Resolving]
  - Thyroiditis [Unknown]

NARRATIVE: CASE EVENT DATE: 20200401
